FAERS Safety Report 4450239-4 (Version None)
Quarter: 2004Q3

REPORT INFORMATION
  Report Type: 
  Country: None (occurrence: None)
  Receive Date: 20040914
  Receipt Date: 20030429
  Transmission Date: 20050211
  Serious: Yes (Death)
  Sender: FDA-Public Use
  Company Number: 2004231601CA

PATIENT
  Age: 88 Year
  Sex: Female

DRUGS (5)
  1. ZYVOX [Suspect]
     Indication: PNEUMONIA ASPIRATION
     Dosage: 600 MG, BID
     Dates: start: 20020508, end: 20020513
  2. CIPROFLOXACIN [Suspect]
     Dosage: 250, BID
     Dates: end: 20020508
  3. FLAGYL [Suspect]
     Dosage: 500, TID
     Dates: start: 20020507, end: 20020508
  4. VANCOMYCIN [Suspect]
     Dosage: 500, BID, IV
     Route: 042
     Dates: start: 20020506, end: 20020507
  5. LEVAQUIN [Suspect]
     Dosage: 500, QD
     Dates: start: 20020508, end: 20020513

REACTIONS (4)
  - CONDITION AGGRAVATED [None]
  - DRUG INEFFECTIVE [None]
  - PNEUMONIA [None]
  - STAPHYLOCOCCAL BACTERAEMIA [None]
